FAERS Safety Report 12913665 (Version 2)
Quarter: 2016Q4

REPORT INFORMATION
  Report Type: Report from Study
  Country: DE (occurrence: DE)
  Receive Date: 20161104
  Receipt Date: 20161110
  Transmission Date: 20170207
  Serious: Yes (Death, Hospitalization, Other)
  Sender: FDA-Public Use
  Company Number: PHHY2016DE151519

PATIENT
  Sex: Female
  Weight: 87 kg

DRUGS (4)
  1. EXEMESTANE. [Concomitant]
     Active Substance: EXEMESTANE
     Indication: BREAST CANCER METASTATIC
     Dosage: 25 MG, QD
     Route: 048
     Dates: start: 20130607, end: 20160518
  2. AFINITOR [Suspect]
     Active Substance: EVEROLIMUS
     Indication: BREAST CANCER METASTATIC
     Dosage: ALTERNATING DOSE BETWEEN 5.0 MG AND 10 MG, QOD
     Route: 048
     Dates: start: 20130607, end: 20150921
  3. AFINITOR [Suspect]
     Active Substance: EVEROLIMUS
     Dosage: ALTERNATING BETWEEN 5.0 MG AND 10 MG, QOD
     Route: 048
     Dates: start: 20160208, end: 20160403
  4. AFINITOR [Suspect]
     Active Substance: EVEROLIMUS
     Dosage: 2.5 MG, QD
     Route: 048
     Dates: start: 20160502, end: 20160518

REACTIONS (4)
  - Weight decreased [Not Recovered/Not Resolved]
  - Sepsis [Unknown]
  - Retroperitoneal abscess [Recovered/Resolved with Sequelae]
  - Multiple organ dysfunction syndrome [Fatal]

NARRATIVE: CASE EVENT DATE: 20160404
